FAERS Safety Report 4839442-9 (Version None)
Quarter: 2005Q4

REPORT INFORMATION
  Report Type: 
  Country: None (occurrence: None)
  Receive Date: 20051129
  Receipt Date: 20051123
  Transmission Date: 20060501
  Serious: Yes (Hospitalization)
  Sender: FDA-Public Use
  Company Number: DE-MERCK-0511DEU00159

PATIENT
  Age: 52 Year
  Sex: Male

DRUGS (4)
  1. METHOTREXATE [Concomitant]
     Route: 065
  2. PREDNISOLONE [Concomitant]
     Route: 048
  3. OMEPRAZOLE [Concomitant]
     Route: 065
  4. FOSAMAX [Suspect]
     Indication: OSTEOPOROSIS
     Route: 048

REACTIONS (1)
  - INTRACRANIAL VENOUS SINUS THROMBOSIS [None]
